FAERS Safety Report 8336976-X (Version None)
Quarter: 2012Q2

REPORT INFORMATION
  Report Type: 
  Country: None (occurrence: None)
  Receive Date: 20120504
  Receipt Date: 20120430
  Transmission Date: 20120825
  Serious: Yes (Other)
  Sender: FDA-Public Use
  Company Number: PHHY2012JP037384

PATIENT
  Age: 69 Year

DRUGS (6)
  1. PREDNISOLONE ACETATE [Concomitant]
  2. CYCLOPHOSPHAMIDE [Concomitant]
  3. VINCRISTINE [Interacting]
     Indication: LYMPHOMA
  4. ADRIAMYCIN PFS [Concomitant]
  5. ETOPOSIDE [Concomitant]
  6. FLUCONAZOLE [Suspect]
     Route: 048

REACTIONS (2)
  - ILEUS PARALYTIC [None]
  - DRUG INTERACTION [None]
